FAERS Safety Report 10802583 (Version 1)
Quarter: 2015Q1

REPORT INFORMATION
  Report Type: Spontaneous
  Country: US (occurrence: US)
  Receive Date: 20150217
  Receipt Date: 20150217
  Transmission Date: 20150721
  Serious: Yes (Other)
  Sender: FDA-Public Use
  Company Number: US-BRACCO-010912

PATIENT
  Age: 48 Year
  Sex: Female

DRUGS (6)
  1. PREDNISONE. [Concomitant]
     Active Substance: PREDNISONE
     Dosage: 1 HOUR BEFORE PROCEDURE
     Dates: start: 20140307
  2. BENADRYL [Concomitant]
     Active Substance: DIPHENHYDRAMINE HYDROCHLORIDE
     Dosage: 1 HOUR BEFORE PROCEDURE
     Dates: start: 20140307
  3. ALL OTHER THERAPEUTIC PRODUCTS [Concomitant]
     Active Substance: UNSPECIFIED INGREDIENT
  4. ISOVUE 300 [Suspect]
     Active Substance: IOPAMIDOL
     Indication: COMPUTERISED TOMOGRAM
     Route: 042
     Dates: start: 20140307, end: 20140307
  5. PREDNISONE. [Concomitant]
     Active Substance: PREDNISONE
     Dosage: 7 HOURS BEFORE PROCEDURE
     Dates: start: 20140307
  6. PREDNISONE. [Concomitant]
     Active Substance: PREDNISONE
     Dosage: 13 HOURS BEFORE PROCEDURE
     Dates: start: 20140307

REACTIONS (4)
  - Cough [Recovered/Resolved]
  - Dyspnoea [Recovered/Resolved]
  - Chest discomfort [Recovered/Resolved]
  - Oxygen saturation decreased [Recovered/Resolved]

NARRATIVE: CASE EVENT DATE: 20140307
